FAERS Safety Report 7398947-X (Version None)
Quarter: 2011Q2

REPORT INFORMATION
  Report Type: 
  Country: None (occurrence: None)
  Receive Date: 20110407
  Receipt Date: 20110404
  Transmission Date: 20111010
  Serious: Yes (Other)
  Sender: FDA-Public Use
  Company Number: US-PFIZER INC-2011074551

PATIENT
  Sex: Female

DRUGS (1)
  1. CHANTIX [Suspect]
     Indication: SMOKING CESSATION THERAPY
     Dosage: 0.5 MG, UNK
     Route: 048
     Dates: start: 20110301, end: 20110322

REACTIONS (6)
  - PANIC ATTACK [None]
  - NERVOUSNESS [None]
  - MEMORY IMPAIRMENT [None]
  - DECREASED APPETITE [None]
  - INSOMNIA [None]
  - ANXIETY [None]
